FAERS Safety Report 13647484 (Version 2)
Quarter: 2019Q1

REPORT INFORMATION
  Report Type: Report from Study
  Country: CA (occurrence: CA)
  Receive Date: 20170613
  Receipt Date: 20190201
  Transmission Date: 20190417
  Serious: Yes (Hospitalization)
  Sender: FDA-Public Use
  Company Number: CA-OTSUKA-2017_002031

PATIENT
  Age: 49 Year
  Sex: Female

DRUGS (3)
  1. TOLVAPTAN [Suspect]
     Active Substance: TOLVAPTAN
     Indication: CONGENITAL CYSTIC KIDNEY DISEASE
     Dosage: 45 MG, QD (IN MORNING)
     Route: 048
     Dates: start: 20170101, end: 20170125
  2. TOLVAPTAN [Suspect]
     Active Substance: TOLVAPTAN
     Dosage: 15 MG, QD (IN EVENING)
     Route: 048
     Dates: start: 20170101, end: 20170125
  3. TOLVAPTAN [Suspect]
     Active Substance: TOLVAPTAN
     Dosage: 45 MG, QD
     Route: 048

REACTIONS (17)
  - White blood cell count increased [Not Recovered/Not Resolved]
  - Headache [Unknown]
  - Polyuria [Not Recovered/Not Resolved]
  - Arthralgia [Unknown]
  - Polydipsia [Unknown]
  - Underdose [Unknown]
  - Diarrhoea [Not Recovered/Not Resolved]
  - Pollakiuria [Unknown]
  - Glomerular filtration rate increased [Not Recovered/Not Resolved]
  - Disinhibition [Unknown]
  - Back pain [Unknown]
  - Dehydration [Unknown]
  - Hospitalisation [Unknown]
  - Influenza [Not Recovered/Not Resolved]
  - Bladder pain [Not Recovered/Not Resolved]
  - Renal pain [Not Recovered/Not Resolved]
  - Pain in extremity [Unknown]

NARRATIVE: CASE EVENT DATE: 201701
